FAERS Safety Report 18371464 (Version 6)
Quarter: 2022Q1

REPORT INFORMATION
  Report Type: Spontaneous
  Country: US (occurrence: US)
  Receive Date: 20201012
  Receipt Date: 20220328
  Transmission Date: 20220424
  Serious: Yes (Other)
  Sender: FDA-Public Use
  Company Number: US-PFIZER INC-2020389560

PATIENT
  Age: 61 Year
  Sex: Female

DRUGS (1)
  1. IBRANCE [Suspect]
     Active Substance: PALBOCICLIB
     Indication: Breast cancer female
     Dosage: 125 MG, CYCLIC (DAILY X 21 DAYS THEN 7 DAYS OFF)
     Route: 048
     Dates: start: 201803

REACTIONS (14)
  - Cataract [Recovered/Resolved]
  - Hepatitis [Unknown]
  - Neoplasm progression [Unknown]
  - Hepatic steatosis [Unknown]
  - Full blood count abnormal [Unknown]
  - Thyroid disorder [Unknown]
  - Weight fluctuation [Unknown]
  - Hepatic enzyme increased [Unknown]
  - Hepatic lesion [Unknown]
  - Weight decreased [Unknown]
  - Hair texture abnormal [Not Recovered/Not Resolved]
  - Nail disorder [Not Recovered/Not Resolved]
  - Hypersensitivity [Unknown]
  - Decreased immune responsiveness [Unknown]
